FAERS Safety Report 23637072 (Version 1)
Quarter: 2024Q1

REPORT INFORMATION
  Report Type: Report from Study
  Country: US (occurrence: US)
  Receive Date: 20240315
  Receipt Date: 20240315
  Transmission Date: 20240410
  Serious: Yes (Hospitalization, Other)
  Sender: FDA-Public Use
  Company Number: US-PFIZER INC-202400063891

PATIENT
  Age: 60 Year
  Sex: Female

DRUGS (13)
  1. BRAFTOVI [Suspect]
     Active Substance: ENCORAFENIB
     Dosage: 75 MG CAPSULE - TAKE 4 CAPSULES (300MG TOTAL) DAILY BY MOUTH
     Route: 048
     Dates: start: 20230711
  2. BRAFTOVI [Suspect]
     Active Substance: ENCORAFENIB
     Dosage: UNK
  3. MEKTOVI [Suspect]
     Active Substance: BINIMETINIB
     Dosage: 15 MG TABLET - TAKE 3 TABLETS (45 MG TOTAL) TWICE DAILY BY MOUTH
     Route: 048
     Dates: start: 20230711
  4. MEKTOVI [Suspect]
     Active Substance: BINIMETINIB
     Dosage: UNK
  5. OPDIVO [Suspect]
     Active Substance: NIVOLUMAB
     Dosage: EVERY 3 WEEKS FOR ABOUT 2 MONTHS
  6. YERVOY [Suspect]
     Active Substance: IPILIMUMAB
     Dosage: EVERY 3 WEEKS FOR ABOUT 2 MONTHS
  7. IBUPROFEN [Concomitant]
     Active Substance: IBUPROFEN
     Dosage: UNK
  8. AMLODIPINE BESYLATE [Concomitant]
     Active Substance: AMLODIPINE BESYLATE
     Dosage: UNK
  9. LEVETIRACETAM [Concomitant]
     Active Substance: LEVETIRACETAM
     Dosage: UNK
  10. ESCITALOPRAM OXALATE [Concomitant]
     Active Substance: ESCITALOPRAM OXALATE
     Dosage: UNK
  11. LOSARTAN POTASSIUM [Concomitant]
     Active Substance: LOSARTAN POTASSIUM
     Dosage: UNK
  12. METOPROLOL TARTRATE [Concomitant]
     Active Substance: METOPROLOL TARTRATE
     Dosage: UNK
  13. INFLECTRA [Concomitant]
     Active Substance: INFLIXIMAB-DYYB
     Dosage: UNK

REACTIONS (3)
  - Colitis [Recovering/Resolving]
  - Rectal haemorrhage [Recovering/Resolving]
  - Clostridium difficile infection [Recovering/Resolving]

NARRATIVE: CASE EVENT DATE: 20240220
